FAERS Safety Report 4279338-7 (Version None)
Quarter: 2004Q1

REPORT INFORMATION
  Report Type: 
  Country: None (occurrence: None)
  Receive Date: 20040126
  Receipt Date: 20040126
  Transmission Date: 20041129
  Serious: Yes (Disabling)
  Sender: FDA-Public Use
  Company Number: None

PATIENT
  Age: 46 Year
  Sex: Male
  Weight: 97.5234 kg

DRUGS (2)
  1. LIPITOR [Suspect]
     Indication: BLOOD CHOLESTEROL INCREASED
     Dosage: 1 DAILY ORAL
     Route: 048
     Dates: start: 20031123, end: 20040108
  2. NIASPAN [Concomitant]

REACTIONS (3)
  - DIFFICULTY IN WALKING [None]
  - DYSSTASIA [None]
  - MYALGIA [None]
